FAERS Safety Report 13852406 (Version 1)
Quarter: 2017Q3

REPORT INFORMATION
  Report Type: Spontaneous
  Country: US (occurrence: US)
  Receive Date: 20170809
  Receipt Date: 20170809
  Transmission Date: 20171127
  Serious: No
  Sender: FDA-Public Use
  Company Number: US-ROCHE-630604

PATIENT
  Sex: Female
  Weight: 53.5 kg

DRUGS (1)
  1. BONIVA [Suspect]
     Active Substance: IBANDRONATE SODIUM
     Indication: OSTEOPENIA
     Dosage: OTHER INDICATION: OSTEOPOROSIS PREVENTION
     Route: 048
     Dates: start: 20080103, end: 20080601

REACTIONS (4)
  - Lethargy [Recovering/Resolving]
  - Influenza like illness [Recovering/Resolving]
  - Abdominal pain upper [Recovering/Resolving]
  - Dyspepsia [Recovered/Resolved]
